FAERS Safety Report 4957967-2 (Version None)
Quarter: 2006Q1

REPORT INFORMATION
  Report Type: 
  Country: None (occurrence: None)
  Receive Date: 20060330
  Receipt Date: 20051005
  Transmission Date: 20060701
  Serious: Yes (Hospitalization, Disabling, Other)
  Sender: FDA-Public Use
  Company Number: US-MERCK-0510USA05314

PATIENT
  Age: 57 Year
  Sex: Male
  Weight: 86 kg

DRUGS (4)
  1. VIOXX [Suspect]
     Indication: RHEUMATOID ARTHRITIS
     Route: 048
     Dates: start: 19990101, end: 20040101
  2. PREDNISONE [Concomitant]
     Indication: ARTHRITIS
     Route: 065
  3. ARAVA [Concomitant]
     Route: 065
  4. TYLENOL (CAPLET) [Concomitant]
     Route: 065

REACTIONS (26)
  - BRONCHITIS ACUTE [None]
  - CARDIAC MURMUR [None]
  - CARPAL TUNNEL SYNDROME [None]
  - COLONIC POLYP [None]
  - DEAFNESS [None]
  - DYSPEPSIA [None]
  - GASTROOESOPHAGEAL REFLUX DISEASE [None]
  - HYDROCEPHALUS [None]
  - HYPERTENSION [None]
  - HYPOXIA [None]
  - INTERSTITIAL LUNG DISEASE [None]
  - INTERVERTEBRAL DISC DEGENERATION [None]
  - INTERVERTEBRAL DISC PROTRUSION [None]
  - INTRACRANIAL ANEURYSM [None]
  - JOINT INJURY [None]
  - JOINT SPRAIN [None]
  - JOINT SWELLING [None]
  - MUSCULOSKELETAL DISCOMFORT [None]
  - NEPHROLITHIASIS [None]
  - PAIN IN EXTREMITY [None]
  - PNEUMONIA [None]
  - POSTOPERATIVE INFECTION [None]
  - SHOULDER PAIN [None]
  - SLEEP APNOEA SYNDROME [None]
  - SPINAL COLUMN STENOSIS [None]
  - SUBARACHNOID HAEMORRHAGE [None]
